FAERS Safety Report 12241655 (Version 1)
Quarter: 2016Q2

REPORT INFORMATION
  Report Type: Spontaneous
  Country: PL (occurrence: PL)
  Receive Date: 20160406
  Receipt Date: 20160406
  Transmission Date: 20160815
  Serious: Yes (Hospitalization, Other)
  Sender: FDA-Public Use
  Company Number: PL-AUROBINDO-AUR-APL-2014-04604

PATIENT
  Age: 77 Year
  Sex: Female

DRUGS (3)
  1. ASPIRIN. [Concomitant]
     Active Substance: ASPIRIN
     Indication: PRODUCT USED FOR UNKNOWN INDICATION
     Dosage: UNK UNK,UNK,
     Route: 065
  2. INSULIN [Concomitant]
     Active Substance: INSULIN NOS
     Indication: DIABETES MELLITUS
     Dosage: UNK UNK,UNK,
     Route: 065
  3. METFORMIN [Suspect]
     Active Substance: METFORMIN HYDROCHLORIDE
     Indication: DIABETES MELLITUS
     Dosage: UNK UNK,UNK,
     Route: 065

REACTIONS (20)
  - Kussmaul respiration [Unknown]
  - Hypotension [Unknown]
  - Bradycardia [Unknown]
  - Condition aggravated [Recovering/Resolving]
  - Malaise [Unknown]
  - Dehydration [Unknown]
  - Diarrhoea [Unknown]
  - Pain [Unknown]
  - Hypovolaemia [Unknown]
  - Intentional product misuse [Recovering/Resolving]
  - Vomiting [Unknown]
  - Medication error [Unknown]
  - Abdominal pain [Unknown]
  - Dyspnoea [Unknown]
  - Hypothermia [Unknown]
  - Anuria [Unknown]
  - Lactic acidosis [Recovering/Resolving]
  - Chronic kidney disease [Recovering/Resolving]
  - Confusional state [Unknown]
  - Crepitations [Unknown]
